FAERS Safety Report 4430213-4 (Version None)
Quarter: 2004Q3

REPORT INFORMATION
  Report Type: 
  Country: None (occurrence: None)
  Receive Date: 20040820
  Receipt Date: 20040701
  Transmission Date: 20050211
  Serious: Yes (Hospitalization)
  Sender: FDA-Public Use
  Company Number: SE-JNJFOC-20040700281

PATIENT
  Age: 71 Year
  Sex: Female

DRUGS (7)
  1. REMINYL [Suspect]
     Route: 049
  2. STILNOCT [Concomitant]
  3. ASASANTIN RETARD [Concomitant]
  4. FOSAMAX [Concomitant]
  5. ACETAMINOPHEN [Concomitant]
  6. ERGENYL [Concomitant]
  7. KALCIPOS [Concomitant]

REACTIONS (5)
  - ACCIDENT [None]
  - EPILEPSY [None]
  - EYE PAIN [None]
  - FACE INJURY [None]
  - FALL [None]
